FAERS Safety Report 19313467 (Version 2)
Quarter: 2021Q2

REPORT INFORMATION
  Report Type: Report from Study
  Country: US (occurrence: US)
  Receive Date: 20210527
  Receipt Date: 20210528
  Transmission Date: 20210717
  Serious: No
  Sender: FDA-Public Use
  Company Number: NVSC2021US112852

PATIENT
  Sex: Female

DRUGS (2)
  1. COSENTYX [Suspect]
     Active Substance: SECUKINUMAB
     Indication: PSORIASIS
     Dosage: 300 MG EVERY FOUR WEEKS
     Route: 058
  2. COSENTYX [Suspect]
     Active Substance: SECUKINUMAB
     Route: 058

REACTIONS (10)
  - Nausea [Unknown]
  - Illness [Unknown]
  - Joint swelling [Unknown]
  - Back pain [Unknown]
  - Diarrhoea [Unknown]
  - Breath sounds [Unknown]
  - Abdominal discomfort [Unknown]
  - Respiratory disorder [Unknown]
  - Feeling abnormal [Unknown]
  - Nasal congestion [Unknown]
